FAERS Safety Report 5928294-1 (Version None)
Quarter: 2008Q4

REPORT INFORMATION
  Report Type: 
  Country: None (occurrence: None)
  Receive Date: 20081022
  Receipt Date: 20081022
  Transmission Date: 20090506
  Serious: Yes (Other)
  Sender: FDA-Public Use
  Company Number: None

PATIENT
  Sex: Female

DRUGS (1)
  1. RITUXIMAB [Suspect]
     Dosage: 100ML/HR
     Dates: start: 20081016, end: 20081016

REACTIONS (4)
  - COUGH [None]
  - DYSPHONIA [None]
  - DYSPNOEA [None]
  - THROAT IRRITATION [None]
